FAERS Safety Report 14243606 (Version 3)
Quarter: 2018Q1

REPORT INFORMATION
  Report Type: Report from Study
  Country: US (occurrence: US)
  Receive Date: 20171201
  Receipt Date: 20180112
  Transmission Date: 20180508
  Serious: Yes (Hospitalization)
  Sender: FDA-Public Use
  Company Number: US-PFIZER INC-2017501614

PATIENT
  Age: 15 Year
  Sex: Female
  Weight: 40 kg

DRUGS (4)
  1. TALAZOPARIB [Suspect]
     Active Substance: TALAZOPARIB
     Indication: EWING^S SARCOMA
     Dosage: 500 UG, CYCLIC BID (DAY 1 EVERY 3 WEEKS)
     Route: 048
     Dates: start: 20171026
  2. IRINOTECAN HCL [Suspect]
     Active Substance: IRINOTECAN HYDROCHLORIDE
     Indication: EWING^S SARCOMA
     Dosage: 55 MG, CYCLIC (DAILY (DAYS 2-6 EVERY 3 WEEKS))
     Route: 042
     Dates: start: 20171027
  3. TALAZOPARIB [Suspect]
     Active Substance: TALAZOPARIB
     Dosage: 800 UG, CYCLIC (DAILY (DAYS 2-6 EVERY 3 WEEKS))
     Route: 048
     Dates: start: 20171027
  4. TEMOZOLOMIDE. [Suspect]
     Active Substance: TEMOZOLOMIDE
     Indication: EWING^S SARCOMA
     Dosage: 20 MG, CYCLIC (DAILY (DAYS 2-6 EVERY 3 WEEKS))
     Route: 048
     Dates: start: 20171027

REACTIONS (2)
  - Pain [Recovered/Resolved]
  - Oesophagitis [Recovered/Resolved]

NARRATIVE: CASE EVENT DATE: 20171117
